FAERS Safety Report 19224315 (Version 1)
Quarter: 2021Q2

REPORT INFORMATION
  Report Type: Spontaneous
  Country: US (occurrence: US)
  Receive Date: 20210505
  Receipt Date: 20210505
  Transmission Date: 20210717
  Serious: No
  Sender: FDA-Public Use
  Company Number: US-ROCHE-2590734

PATIENT
  Sex: Female

DRUGS (2)
  1. ESBRIET [Suspect]
     Active Substance: PIRFENIDONE
     Dosage: ONGOING;YES,6 TABLET A DAY
     Route: 048
  2. ESBRIET [Suspect]
     Active Substance: PIRFENIDONE
     Indication: IDIOPATHIC PULMONARY FIBROSIS
     Dosage: ONGOING: YES 3 TAB 3 TIMES A DAY WITH MEAL
     Route: 048
     Dates: start: 202001

REACTIONS (5)
  - Asthenia [Unknown]
  - Dizziness [Unknown]
  - Weight decreased [Unknown]
  - Nausea [Unknown]
  - Feeding disorder [Unknown]
